FAERS Safety Report 23606350 (Version 2)
Quarter: 2024Q3

REPORT INFORMATION
  Report Type: Report from Study
  Country: EG (occurrence: EG)
  Receive Date: 20240307
  Receipt Date: 20240908
  Transmission Date: 20241017
  Serious: No
  Sender: SANDOZ
  Company Number: EG-SANDOZ-SDZ2024EG021770

PATIENT
  Sex: Male
  Weight: 20.5 kg

DRUGS (5)
  1. OMNITROPE [Suspect]
     Active Substance: SOMATROPIN
     Indication: Growth disorder
     Dosage: WAS 1MG/DAY AND INCREASED TO 1.5MG/DAY DUE TO THE NORMAL GROWRH
     Route: 058
     Dates: start: 20220726
  2. FRUITEX B [Concomitant]
     Indication: Malnutrition
     Dosage: 5 CM
     Route: 048
  3. IRON [Concomitant]
     Active Substance: IRON
     Indication: Malnutrition
     Dosage: 5 CM
     Route: 048
  4. VITAMIN C [Concomitant]
     Active Substance: ASCORBIC ACID
     Indication: Malnutrition
     Dosage: 5 CM
     Route: 048
  5. VITAMIN D SANDOZ [Concomitant]
     Indication: Malnutrition
     Dosage: 5 UNK
     Route: 048

REACTIONS (10)
  - Pyrexia [Recovered/Resolved]
  - Injection site pain [Recovered/Resolved]
  - Injection site swelling [Recovered/Resolved]
  - Feeling hot [Recovered/Resolved]
  - Device breakage [Unknown]
  - Product availability issue [Unknown]
  - Wrong device used [Unknown]
  - Multiple use of single-use product [Unknown]
  - Product storage error [Unknown]
  - Wrong technique in product usage process [Unknown]
